FAERS Safety Report 14643773 (Version 2)
Quarter: 2018Q2

REPORT INFORMATION
  Report Type: Report from Study
  Country: US (occurrence: US)
  Receive Date: 20180315
  Receipt Date: 20180412
  Transmission Date: 20180711
  Serious: Yes (Hospitalization)
  Sender: FDA-Public Use
  Company Number: US-PFIZER INC-2018103231

PATIENT
  Age: 17 Year
  Sex: Female
  Weight: 103 kg

DRUGS (12)
  1. CYCLOPHOSPHAMIDE. [Suspect]
     Active Substance: CYCLOPHOSPHAMIDE
     Indication: HODGKIN^S DISEASE
     Dosage: 600 MG/M2/DOSE IV OVER 30-60 MIN ON DAYS 1-2
     Route: 042
     Dates: start: 20170722
  2. BRENTUXIMAB VEDOTIN RECOMBINANT [Suspect]
     Active Substance: BRENTUXIMAB VEDOTIN
     Indication: HODGKIN^S DISEASE
     Dosage: 1.8 MG/KG/DOSE (MAX DOSE IS 180 MG) IV OVER 30 MIN ON DAY 1
     Route: 042
     Dates: start: 20170722
  3. DEXTROSE AND SODIUM CHLORIDE INJECTION [Concomitant]
     Indication: FLUID REPLACEMENT
     Dosage: 5%-0.45%
     Route: 042
     Dates: start: 20170814
  4. VP-16 [Suspect]
     Active Substance: ETOPOSIDE
     Indication: HODGKIN^S DISEASE
     Dosage: 125 MG/M2/DOSE IV OVER 60-120 MIN ON DAYS 1-3
     Route: 042
     Dates: start: 20170722
  5. VP-16 [Suspect]
     Active Substance: ETOPOSIDE
     Dosage: 125 MG/M2/DOSE IV OVER 60-120 MIN ON DAYS 1-3
     Route: 042
     Dates: start: 20170814, end: 20170816
  6. DOXORUBICIN HCL [Suspect]
     Active Substance: DOXORUBICIN HYDROCHLORIDE
     Dosage: 25 MG/M2/DOSE IV BOLUS OVER 1-5 MIN OR BY INTERMITTENT INFUSION OVER 1-15 MIN ON DAYS 1 AND 2
     Route: 040
     Dates: start: 20170814, end: 20170815
  7. BRENTUXIMAB VEDOTIN RECOMBINANT [Suspect]
     Active Substance: BRENTUXIMAB VEDOTIN
     Dosage: 1.8 MG/KG/DOSE (MAX DOSE IS 180 MG) IV OVER 30 MIN ON DAY 1
     Route: 042
     Dates: start: 20170814, end: 20170814
  8. DOXORUBICIN HCL [Suspect]
     Active Substance: DOXORUBICIN HYDROCHLORIDE
     Indication: HODGKIN^S DISEASE
     Dosage: 25 MG/M2/DOSE IV BOLUS OVER 1-5 MIN OR BY INTERMITTENT INFUSION OVER 1-15 MIN ON DAYS 1 AND 2
     Route: 040
     Dates: start: 20170722
  9. PREDNISONE. [Suspect]
     Active Substance: PREDNISONE
     Indication: HODGKIN^S DISEASE
     Dosage: 20 MG/M2/DOSE BID ON DAYS 1-7
     Route: 048
     Dates: start: 20170722
  10. VINCRISTINE SULFATE. [Suspect]
     Active Substance: VINCRISTINE SULFATE
     Indication: HODGKIN^S DISEASE
     Dosage: 1.4 MG/M2 (MAX DOSE 2.8 MG) IV PUSH OVER 1 MIN OR INFUSION ON DAY 8
     Route: 042
     Dates: start: 20170730, end: 20170730
  11. CYCLOPHOSPHAMIDE. [Suspect]
     Active Substance: CYCLOPHOSPHAMIDE
     Dosage: 600 MG/M2/DOSE IV OVER 30-60 MIN ON DAYS 1-2
     Route: 042
     Dates: start: 20170814, end: 20170815
  12. PREDNISONE. [Suspect]
     Active Substance: PREDNISONE
     Dosage: 20 MG/M2/DOSE BID ON DAYS 1-7
     Route: 048
     Dates: start: 20170814, end: 20170820

REACTIONS (1)
  - Device related infection [Recovered/Resolved]

NARRATIVE: CASE EVENT DATE: 20170815
